FAERS Safety Report 6942250-6 (Version None)
Quarter: 2010Q3

REPORT INFORMATION
  Report Type: 
  Country: None (occurrence: None)
  Receive Date: 20100820
  Receipt Date: 20100811
  Transmission Date: 20110219
  Serious: Yes (Other)
  Sender: FDA-Public Use
  Company Number: 017078

PATIENT
  Age: 47 Year
  Sex: Female

DRUGS (4)
  1. KEPPRA [Suspect]
     Indication: CONVULSION
     Dosage: 100 MG EVERY OTHER DAY), 250 MG
     Dates: start: 20090709, end: 20100801
  2. KEPPRA [Suspect]
     Indication: CONVULSION
     Dosage: 100 MG EVERY OTHER DAY), 250 MG
     Dates: start: 20081022
  3. LACOSAMIDE [Suspect]
     Indication: CONVULSION
     Dosage: 200 MG, 200MG/20 ML DAILY INTRAVENOUS (NOT OTHERWISE SPECIFIED)
     Route: 042
     Dates: start: 20090601
  4. CLINICAL TRIAL DRUG-PERMAPANEL (INVESTIGATIONAL DRUG) [Suspect]

REACTIONS (4)
  - DIZZINESS [None]
  - DRUG INTERACTION [None]
  - NEGATIVISM [None]
  - PAIN [None]
